FAERS Safety Report 8601792-8 (Version None)
Quarter: 2012Q3

REPORT INFORMATION
  Report Type: 
  Country: None (occurrence: None)
  Receive Date: 20120817
  Receipt Date: 20120417
  Transmission Date: 20120928
  Serious: Yes (Other)
  Sender: FDA-Public Use
  Company Number: US-BRISTOL-MYERS SQUIBB COMPANY-16529950

PATIENT
  Age: 49 Year
  Sex: Female
  Weight: 97 kg

DRUGS (1)
  1. SPRYCEL [Suspect]
     Indication: LEUKAEMIA

REACTIONS (2)
  - PLATELET COUNT DECREASED [None]
  - CEREBRAL HAEMORRHAGE [None]
